FAERS Safety Report 4323612-2 (Version None)
Quarter: 2004Q1

REPORT INFORMATION
  Report Type: 
  Country: None (occurrence: None)
  Receive Date: 20040322
  Receipt Date: 20040310
  Transmission Date: 20041129
  Serious: Yes (Hospitalization)
  Sender: FDA-Public Use
  Company Number: FI-JNJFOC-20040302336

PATIENT
  Age: 43 Year
  Sex: Female
  Weight: 57 kg

DRUGS (6)
  1. REMICADE [Suspect]
     Indication: RHEUMATOID ARTHRITIS
     Dosage: SEE IMAGE
     Route: 042
     Dates: start: 20040213, end: 20040213
  2. REMICADE [Suspect]
     Indication: RHEUMATOID ARTHRITIS
     Dosage: SEE IMAGE
     Route: 042
     Dates: start: 20040226, end: 20040226
  3. METHOTREXATE [Concomitant]
  4. FOLVITE (FOLIC ACID) [Concomitant]
  5. THYROXIN (LEVOTHYROXINE SODIUM) TABLETS [Suspect]
  6. VOLTAREN [Concomitant]

REACTIONS (6)
  - DYSPNOEA [None]
  - EOSINOPHILIA [None]
  - ERYTHEMA [None]
  - HYPERSENSITIVITY [None]
  - MALAISE [None]
  - VOMITING [None]
